FAERS Safety Report 14933014 (Version 1)
Quarter: 2018Q2

REPORT INFORMATION
  Report Type: Spontaneous
  Country: US (occurrence: US)
  Receive Date: 20180524
  Receipt Date: 20180524
  Transmission Date: 20180711
  Serious: No
  Sender: FDA-Public Use
  Company Number: US-PFIZER INC-2018212712

PATIENT
  Age: 78 Year
  Sex: Female

DRUGS (3)
  1. LYRICA [Suspect]
     Active Substance: PREGABALIN
     Indication: POLYMYALGIA RHEUMATICA
     Dosage: 25 MG, 2X/DAY (25MG IN THE MORNING, 25 MG IN THE NIGHT)
     Route: 048
  2. ALTACE [Concomitant]
     Active Substance: RAMIPRIL
     Indication: BLOOD PRESSURE MEASUREMENT
     Dosage: UNK
  3. PREDNISONE. [Concomitant]
     Active Substance: PREDNISONE
     Indication: POLYMYALGIA RHEUMATICA
     Dosage: 6 MG, UNK

REACTIONS (2)
  - Somnolence [Not Recovered/Not Resolved]
  - Product use in unapproved indication [Unknown]
